FAERS Safety Report 8446184-X (Version None)
Quarter: 2012Q2

REPORT INFORMATION
  Report Type: 
  Country: None (occurrence: None)
  Receive Date: 20120323
  Receipt Date: 20110910
  Transmission Date: 20120825
  Serious: Yes (Hospitalization, Other)
  Sender: FDA-Public Use
  Company Number: 163-21880-11091291

PATIENT
  Age: 68 Year
  Sex: Female
  Weight: 83.0083 kg

DRUGS (15)
  1. POTASSIUM CHLORIDE [Concomitant]
  2. NORTRIPTYLINE HCL (NORTRIPTYLINE HYDROCHLORIDE) [Concomitant]
  3. COUMADIN [Concomitant]
  4. TRAZAMINE (TIRAPAZAMINE) [Concomitant]
  5. LEVOTHYROXINE SODIUM [Concomitant]
  6. ALLEGRA [Concomitant]
  7. EVISTA [Concomitant]
  8. REVLIMID [Suspect]
     Dosage: 25 MG, QD X 21 DAYS EVERY 28 DAYS, PO
     Route: 048
     Dates: start: 20110726
  9. DEXAMETHASONE [Concomitant]
  10. PHENERGAN HCL [Concomitant]
  11. ASPIRIN [Concomitant]
  12. CARISOPRODOL [Concomitant]
  13. BENAZEPRIL HYDROCHLORIDE [Concomitant]
  14. TRIAMTERENE (TRIAMTERENE) [Concomitant]
  15. AMLODIPINE [Concomitant]

REACTIONS (5)
  - DEHYDRATION [None]
  - BLOOD POTASSIUM DECREASED [None]
  - SYNCOPE [None]
  - FATIGUE [None]
  - NAUSEA [None]
